FAERS Safety Report 9636639 (Version 1)
Quarter: 2013Q4

REPORT INFORMATION
  Report Type: Spontaneous
  Country: TR (occurrence: TR)
  Receive Date: 20131021
  Receipt Date: 20131021
  Transmission Date: 20140711
  Serious: Yes (Death, Hospitalization)
  Sender: FDA-Public Use
  Company Number: TR-ASTRAZENECA-2013SE76554

PATIENT
  Sex: Male

DRUGS (2)
  1. SYNAGIS [Suspect]
     Indication: CORONARY ARTERY DISEASE
     Route: 030
  2. INFLUENZA VACCINE [Suspect]
     Indication: ANTIVIRAL PROPHYLAXIS
     Route: 065
     Dates: start: 20131009, end: 20131009

REACTIONS (1)
  - Arrhythmia [Fatal]
